APPROVED DRUG PRODUCT: STERILE WATER FOR INJECTION
Active Ingredient: STERILE WATER FOR INJECTION
Strength: 100% (5ML)
Dosage Form/Route: LIQUID;N/A
Application: A217341 | Product #003 | TE Code: AP
Applicant: AMERICAN REGENT INC
Approved: Feb 9, 2024 | RLD: No | RS: No | Type: RX